FAERS Safety Report 7037894-X (Version None)
Quarter: 2010Q4

REPORT INFORMATION
  Report Type: 
  Country: None (occurrence: None)
  Receive Date: 20101011
  Receipt Date: 20101004
  Transmission Date: 20110411
  Serious: Yes (Hospitalization, Other)
  Sender: FDA-Public Use
  Company Number: US-ELI_LILLY_AND_COMPANY-US201005000640

PATIENT
  Sex: Male
  Weight: 113.38 kg

DRUGS (12)
  1. BYETTA [Suspect]
     Dosage: UNK, UNKNOWN
     Dates: start: 20060105, end: 20080513
  2. LANTUS [Concomitant]
     Indication: DIABETES MELLITUS
  3. JANUVIA [Concomitant]
     Indication: DIABETES MELLITUS
  4. ACTOS [Concomitant]
  5. SIMVASTATIN [Concomitant]
     Indication: PROPHYLAXIS
  6. AMPICILLIN [Concomitant]
     Indication: ANTIBIOTIC THERAPY
  7. GENTAMICIN [Concomitant]
     Indication: ANTIBIOTIC THERAPY
  8. AMOXICILLIN [Concomitant]
     Indication: ANTIBIOTIC THERAPY
  9. FELODIPINE [Concomitant]
     Indication: HYPERTENSION
  10. LISINOPRIL [Concomitant]
     Indication: HYPERTENSION
  11. METOPROLOL [Concomitant]
     Indication: HYPERTENSION
  12. ACETAMINOPHEN [Concomitant]

REACTIONS (4)
  - OFF LABEL USE [None]
  - PANCREATITIS [None]
  - RENAL FAILURE ACUTE [None]
  - RENAL IMPAIRMENT [None]
